FAERS Safety Report 24229167 (Version 2)
Quarter: 2024Q4

REPORT INFORMATION
  Report Type: Spontaneous
  Country: US (occurrence: US)
  Receive Date: 20240820
  Receipt Date: 20241010
  Transmission Date: 20250115
  Serious: No
  Sender: Vantive US Healthcare
  Company Number: US-VANTIVE-2024VAN018984

PATIENT
  Age: 62 Year
  Sex: Male

DRUGS (1)
  1. DIANEAL FOR PERITONEAL DIALYSIS [Suspect]
     Active Substance: ANHYDROUS DEXTROSE\CALCIUM CHLORIDE\MAGNESIUM CHLORIDE\SODIUM CHLORIDE\SODIUM LACTATE
     Route: 033

REACTIONS (3)
  - Dizziness [Recovering/Resolving]
  - Therapeutic product effect increased [Recovering/Resolving]
  - Hypotension [Recovering/Resolving]

NARRATIVE: CASE EVENT DATE: 20240806
